FAERS Safety Report 7039426-9 (Version None)
Quarter: 2010Q4

REPORT INFORMATION
  Report Type: 
  Country: None (occurrence: None)
  Receive Date: 20101012
  Receipt Date: 20101001
  Transmission Date: 20110411
  Serious: Yes (Hospitalization, Other)
  Sender: FDA-Public Use
  Company Number: JP-ROCHE-708480

PATIENT
  Sex: Female
  Weight: 38 kg

DRUGS (10)
  1. AVASTIN [Suspect]
     Indication: LUNG ADENOCARCINOMA METASTATIC
     Route: 041
     Dates: start: 20100507, end: 20100507
  2. CARBOPLATIN [Concomitant]
     Route: 041
     Dates: start: 20100507, end: 20100507
  3. PACLITAXEL [Concomitant]
     Route: 041
     Dates: start: 20100507, end: 20100507
  4. OXYCONTIN [Concomitant]
     Route: 048
     Dates: start: 20081202, end: 20100511
  5. MAGLAX [Concomitant]
     Route: 048
     Dates: start: 20081202, end: 20100511
  6. RIZE [Concomitant]
     Route: 048
     Dates: start: 20081202, end: 20100511
  7. LOXONIN [Concomitant]
     Route: 048
     Dates: start: 20081202, end: 20100511
  8. CYTOTEC [Concomitant]
     Route: 048
     Dates: start: 20081202, end: 20100511
  9. NAUZELIN [Concomitant]
     Route: 048
     Dates: start: 20081202, end: 20100511
  10. PURSENNID [Concomitant]
     Route: 048
     Dates: start: 20100302

REACTIONS (4)
  - MENINGITIS [None]
  - NAUSEA [None]
  - NEUTROPHIL COUNT DECREASED [None]
  - VOMITING [None]
